FAERS Safety Report 12180095 (Version 1)
Quarter: 2016Q1

REPORT INFORMATION
  Report Type: Spontaneous
  Country: US (occurrence: None)
  Receive Date: 20160314
  Receipt Date: 20160314
  Transmission Date: 20160526
  Serious: Yes (Other)
  Sender: FDA-Public Use
  Company Number: None

PATIENT
  Age: 52 Year
  Sex: Female
  Weight: 113.4 kg

DRUGS (18)
  1. WELLBUTRIN [Suspect]
     Active Substance: BUPROPION HYDROCHLORIDE
  2. EFFEXOR [Suspect]
     Active Substance: VENLAFAXINE HYDROCHLORIDE
  3. BIT C [Concomitant]
  4. TYLENOL [Concomitant]
     Active Substance: ACETAMINOPHEN
  5. LOSARNT [Concomitant]
  6. AMBIENT GENERIC [Concomitant]
  7. B STRESS TAB [Concomitant]
  8. ROSIOLA RHODACIA [Concomitant]
  9. LORAZAPAM [Concomitant]
     Active Substance: LORAZEPAM
  10. ASPIRIN. [Concomitant]
     Active Substance: ASPIRIN
  11. DEXTROAMPHETAMINE. [Suspect]
     Active Substance: DEXTROAMPHETAMINE
     Indication: ATTENTION DEFICIT/HYPERACTIVITY DISORDER
     Dosage: 20MG: 2-10MG TABS /4-5MG TABS THREE TIMES DAILY TAKEN BY MOUTH
     Route: 048
     Dates: start: 19991031, end: 20160312
  12. BUPROPION. [Concomitant]
     Active Substance: BUPROPION
  13. LISINOPRIL. [Concomitant]
     Active Substance: LISINOPRIL
  14. HYDROAPAP [Concomitant]
  15. ONE A DAY BIT [Concomitant]
  16. MELATONIN [Concomitant]
     Active Substance: MELATONIN
  17. VITAMIN D [Concomitant]
     Active Substance: CHOLECALCIFEROL
  18. SELENIUM [Concomitant]
     Active Substance: SELENIUM

REACTIONS (3)
  - Acne [None]
  - Social problem [None]
  - Hyperhidrosis [None]

NARRATIVE: CASE EVENT DATE: 20160301
